FAERS Safety Report 8727049 (Version 11)
Quarter: 2013Q4

REPORT INFORMATION
  Report Type: Report from Study
  Country: JP (occurrence: JP)
  Receive Date: 20120816
  Receipt Date: 20131204
  Transmission Date: 20140711
  Serious: Yes (Life-Threatening, Hospitalization, Other)
  Sender: FDA-Public Use
  Company Number: JP-GLAXOSMITHKLINE-Z0016523A

PATIENT
  Age: 41 Year
  Sex: Female
  Weight: 54.5 kg

DRUGS (5)
  1. OFATUMUMAB [Suspect]
     Indication: B-CELL LYMPHOMA
     Dosage: 1000MG CYCLIC
     Route: 042
     Dates: start: 20111012, end: 20120316
  2. BROTIZOLAM [Suspect]
     Indication: INSOMNIA
     Dosage: .25MG AS REQUIRED
     Route: 048
     Dates: start: 20110822
  3. ACICLOVIR [Suspect]
     Indication: ANTIVIRAL PROPHYLAXIS
     Dosage: 200MG PER DAY
     Route: 048
     Dates: start: 20111107, end: 20120516
  4. BENDAMUSTINE [Suspect]
     Indication: B-CELL LYMPHOMA
     Dates: start: 20120727, end: 20120730
  5. SULFAMETHOXAZOLE-TRIMETHOPRIM [Suspect]

REACTIONS (1)
  - Toxic epidermal necrolysis [Not Recovered/Not Resolved]
